FAERS Safety Report 10838782 (Version 1)
Quarter: 2015Q1

REPORT INFORMATION
  Report Type: Report from Study
  Country: US (occurrence: US)
  Receive Date: 20150219
  Receipt Date: 20150219
  Transmission Date: 20150721
  Serious: No
  Sender: FDA-Public Use
  Company Number: US-ABBVIE-14P-163-1228540-00

PATIENT
  Age: 30 Year
  Sex: Male
  Weight: 70.37 kg

DRUGS (4)
  1. HUMIRA [Suspect]
     Active Substance: ADALIMUMAB
     Indication: CROHN^S DISEASE
     Dosage: ONE DOSE
     Dates: start: 201309, end: 201309
  2. HUMIRA [Suspect]
     Active Substance: ADALIMUMAB
     Dosage: FOUR WEEKS AFTER 160 MG DOSE
     Dates: start: 2013
  3. HUMIRA [Suspect]
     Active Substance: ADALIMUMAB
     Dosage: ONE DOSE, TWO WEEKS AFTER 160 MG DOSE
     Dates: start: 2013, end: 2013
  4. PREDNISONE. [Concomitant]
     Active Substance: PREDNISONE
     Indication: CROHN^S DISEASE
     Dosage: AS NEEDED, NONE SINCE SEP 2013

REACTIONS (5)
  - Device issue [Not Recovered/Not Resolved]
  - Oral herpes [Not Recovered/Not Resolved]
  - Incorrect dose administered [Unknown]
  - Injection site haemorrhage [Not Recovered/Not Resolved]
  - Injection site urticaria [Recovered/Resolved]

NARRATIVE: CASE EVENT DATE: 2013
